FAERS Safety Report 5224771-X (Version None)
Quarter: 2007Q1

REPORT INFORMATION
  Report Type: 
  Country: None (occurrence: None)
  Receive Date: 20070131
  Receipt Date: 20070119
  Transmission Date: 20070707
  Serious: Yes (Other)
  Sender: FDA-Public Use
  Company Number: PHBS2007CH01200

PATIENT
  Age: 56 Year
  Sex: Female

DRUGS (4)
  1. AREDIA [Suspect]
     Indication: MULTIPLE MYELOMA
     Dosage: 90 MG, MONTHLY
     Route: 042
     Dates: start: 20020101, end: 20040101
  2. THALIDOMIDE [Concomitant]
     Indication: MULTIPLE MYELOMA
     Dosage: UNK, UNK
     Route: 065
     Dates: start: 20060101
  3. DEXAMETHASONE [Concomitant]
     Indication: MULTIPLE MYELOMA
     Dosage: UNK, UNK
     Route: 065
     Dates: start: 20060101
  4. ZOMETA [Suspect]
     Indication: MULTIPLE MYELOMA
     Dosage: 4 MG, MONTHLY
     Route: 042
     Dates: start: 20040101, end: 20060101

REACTIONS (3)
  - ACTINOMYCOSIS [None]
  - OSTEONECROSIS [None]
  - ULCER [None]
